FAERS Safety Report 10051409 (Version 1)
Quarter: 2014Q2

REPORT INFORMATION
  Report Type: Spontaneous
  Country: US (occurrence: US)
  Receive Date: 20140401
  Receipt Date: 20140401
  Transmission Date: 20141212
  Serious: No
  Sender: FDA-Public Use
  Company Number: US-PFIZER INC-2014090388

PATIENT
  Age: 55 Year
  Sex: Female
  Weight: 86.17 kg

DRUGS (3)
  1. LYRICA [Suspect]
     Indication: NEURALGIA
     Dosage: 100 MG, 2X/DAY
  2. LYRICA [Suspect]
     Indication: FIBROMYALGIA
     Dosage: 50 MG, 4X/DAY
  3. PLAQUENIL [Concomitant]
     Indication: AUTOIMMUNE DISORDER
     Dosage: 200 MG, 2X/DAY

REACTIONS (2)
  - Somnolence [Unknown]
  - Dry mouth [Unknown]
